FAERS Safety Report 8277497-2 (Version None)
Quarter: 2012Q2

REPORT INFORMATION
  Report Type: 
  Country: None (occurrence: None)
  Receive Date: 20120412
  Receipt Date: 20120402
  Transmission Date: 20120825
  Serious: Yes (Other)
  Sender: FDA-Public Use
  Company Number: US-BRISTOL-MYERS SQUIBB COMPANY-16495798

PATIENT
  Age: 41 Year
  Sex: Female

DRUGS (1)
  1. NADOLOL [Suspect]
     Dosage: LOW DOSE INTERRUPTED AND RESTARTED

REACTIONS (1)
  - LEFT VENTRICULAR DYSFUNCTION [None]
